FAERS Safety Report 12787119 (Version 1)
Quarter: 2016Q3

REPORT INFORMATION
  Report Type: Spontaneous
  Country: US (occurrence: US)
  Receive Date: 20160928
  Receipt Date: 20160928
  Transmission Date: 20161109
  Serious: No
  Sender: FDA-Public Use
  Company Number: US-BAYER-2016-183740

PATIENT
  Sex: Female

DRUGS (1)
  1. FINACEA [Suspect]
     Active Substance: AZELAIC ACID
     Dosage: UNK
     Route: 061
     Dates: start: 20160615

REACTIONS (6)
  - Miliaria [None]
  - Skin discolouration [None]
  - Rash erythematous [None]
  - Exfoliative rash [None]
  - Rash [None]
  - Rash [Recovering/Resolving]

NARRATIVE: CASE EVENT DATE: 20160716
